FAERS Safety Report 18036759 (Version 2)
Quarter: 2020Q3

REPORT INFORMATION
  Report Type: Spontaneous
  Country: CN (occurrence: CN)
  Receive Date: 20200717
  Receipt Date: 20200807
  Transmission Date: 20201103
  Serious: Yes (Death, Other)
  Sender: FDA-Public Use
  Company Number: CN-ASTELLAS-2020US023840

PATIENT
  Age: 77 Year
  Sex: Male

DRUGS (2)
  1. XTANDI [Suspect]
     Active Substance: ENZALUTAMIDE
     Dosage: UNK, UNKNOWN FREQ.
     Route: 048
     Dates: end: 20200731
  2. XTANDI [Suspect]
     Active Substance: ENZALUTAMIDE
     Indication: HORMONE-REFRACTORY PROSTATE CANCER
     Route: 048

REACTIONS (5)
  - Anaemia [Not Recovered/Not Resolved]
  - Malignant neoplasm progression [Fatal]
  - Underdose [Unknown]
  - Chest discomfort [Not Recovered/Not Resolved]
  - Organ failure [Fatal]
